FAERS Safety Report 12924691 (Version 2)
Quarter: 2016Q4

REPORT INFORMATION
  Report Type: Spontaneous
  Country: FR (occurrence: FR)
  Receive Date: 20161108
  Receipt Date: 20161125
  Transmission Date: 20170207
  Serious: Yes (Other)
  Sender: FDA-Public Use
  Company Number: FR-JNJFOC-20161104664

PATIENT
  Age: 29 Year
  Sex: Female

DRUGS (3)
  1. IMUREL [Suspect]
     Active Substance: AZATHIOPRINE SODIUM
     Indication: CROHN^S DISEASE
     Route: 048
     Dates: start: 201508, end: 20160406
  2. IMUREL [Suspect]
     Active Substance: AZATHIOPRINE SODIUM
     Indication: CROHN^S DISEASE
     Route: 048
     Dates: start: 201312
  3. REMICADE [Suspect]
     Active Substance: INFLIXIMAB
     Indication: CROHN^S DISEASE
     Dosage: 0.0893 MG/KG
     Route: 042
     Dates: start: 201508, end: 201512

REACTIONS (2)
  - Toxoplasmosis [Recovered/Resolved]
  - Exposure during pregnancy [Recovered/Resolved]

NARRATIVE: CASE EVENT DATE: 201508
